FAERS Safety Report 8310384 (Version 5)
Quarter: 2013Q1

REPORT INFORMATION
  Report Type: Spontaneous
  Country: GB (occurrence: GB)
  Receive Date: 20111223
  Receipt Date: 20130325
  Transmission Date: 20140127
  Serious: Yes (Other)
  Sender: FDA-Public Use
  Company Number: GB-PFIZER INC-2011308566

PATIENT
  Age: 49 Year
  Sex: Female
  Weight: 60 kg

DRUGS (5)
  1. CLARITHROMYCIN [Suspect]
     Indication: LOWER RESPIRATORY TRACT INFECTION
     Dosage: 500 MG, 2X/DAY
     Dates: start: 20111018
  2. TOLTERODINE TARTRATE [Interacting]
     Indication: BLADDER IRRITATION
     Dosage: 4 MG DAILY
     Route: 048
     Dates: start: 20111018, end: 20111019
  3. TOLTERODINE TARTRATE [Interacting]
     Indication: POLLAKIURIA
  4. FLUOXETINE [Interacting]
     Indication: ANXIETY
     Dosage: UNK
     Dates: start: 201109
  5. FLUOXETINE [Interacting]
     Indication: DEPRESSION

REACTIONS (2)
  - Drug interaction [Unknown]
  - Epilepsy [Recovered/Resolved]
